FAERS Safety Report 14293144 (Version 4)
Quarter: 2018Q1

REPORT INFORMATION
  Report Type: Spontaneous
  Country: US (occurrence: US)
  Receive Date: 20171215
  Receipt Date: 20180320
  Transmission Date: 20180509
  Serious: Yes (Hospitalization)
  Sender: FDA-Public Use
  Company Number: US-VIFOR (INTERNATIONAL) INC.-VIT-2017-13265

PATIENT
  Age: 79 Year
  Sex: Female
  Weight: 81.72 kg

DRUGS (8)
  1. VELTASSA [Suspect]
     Active Substance: PATIROMER
     Indication: HYPERKALAEMIA
     Route: 048
     Dates: start: 20161021, end: 201711
  2. JAKAFI [Concomitant]
     Active Substance: RUXOLITINIB
  3. ATENOLOL. [Concomitant]
     Active Substance: ATENOLOL
  4. ZOLPIDEM TARTRATE. [Concomitant]
     Active Substance: ZOLPIDEM TARTRATE
  5. ARANESP [Concomitant]
     Active Substance: DARBEPOETIN ALFA
  6. TRAMADOL. [Concomitant]
     Active Substance: TRAMADOL
     Indication: PAIN
  7. PREVACID [Concomitant]
     Active Substance: LANSOPRAZOLE
  8. LISINOPRIL. [Concomitant]
     Active Substance: LISINOPRIL
     Indication: RENAL IMPAIRMENT
     Dates: end: 201711

REACTIONS (8)
  - Product taste abnormal [Unknown]
  - Ulcer [Recovered/Resolved]
  - Diverticulitis [Recovered/Resolved]
  - Product physical issue [Unknown]
  - Drug dose omission [Unknown]
  - Seizure [Recovered/Resolved]
  - Nephrolithiasis [Recovered/Resolved]
  - Muscle spasms [Recovered/Resolved]

NARRATIVE: CASE EVENT DATE: 20170101
